FAERS Safety Report 10084808 (Version 1)
Quarter: 2014Q2

REPORT INFORMATION
  Report Type: Spontaneous
  Country: CN (occurrence: CN)
  Receive Date: 20140417
  Receipt Date: 20140417
  Transmission Date: 20141212
  Serious: Yes (Other)
  Sender: FDA-Public Use
  Company Number: CN-ABBVIE-14P-035-1227044-00

PATIENT
  Age: 23 Year
  Sex: Female

DRUGS (1)
  1. DEPAKINE CHRONO [Suspect]
     Indication: AFFECT LABILITY
     Route: 048
     Dates: start: 20130921, end: 20131002

REACTIONS (3)
  - Leukopenia [Unknown]
  - Hepatic function abnormal [Unknown]
  - Rash [Unknown]
